FAERS Safety Report 21818520 (Version 3)
Quarter: 2023Q1

REPORT INFORMATION
  Report Type: Spontaneous
  Country: US (occurrence: US)
  Receive Date: 20230104
  Receipt Date: 20230210
  Transmission Date: 20230418
  Serious: No
  Sender: FDA-Public Use
  Company Number: US-PFIZER INC-202300002078

PATIENT
  Age: 66 Year
  Sex: Male

DRUGS (4)
  1. NIVESTYM [Suspect]
     Active Substance: FILGRASTIM-AAFI
     Indication: Prostate cancer metastatic
     Dosage: UNK
  2. NIVESTYM [Suspect]
     Active Substance: FILGRASTIM-AAFI
     Indication: Metastases to bone
  3. TAXOTERE [Suspect]
     Active Substance: DOCETAXEL
     Indication: Prostate cancer metastatic
     Dosage: UNK
  4. TAXOTERE [Suspect]
     Active Substance: DOCETAXEL
     Indication: Metastases to bone

REACTIONS (1)
  - Pyrexia [Unknown]
